FAERS Safety Report 25543705 (Version 3)
Quarter: 2025Q3

REPORT INFORMATION
  Report Type: Report from Study
  Country: US (occurrence: US)
  Receive Date: 20250711
  Receipt Date: 20250922
  Transmission Date: 20251021
  Serious: Yes (Other)
  Sender: AIMMUNE
  Company Number: US-ZENPEP LLC-2025AIMT00635

PATIENT

DRUGS (3)
  1. ZENPEP [Suspect]
     Active Substance: PANCRELIPASE AMYLASE\PANCRELIPASE LIPASE\PANCRELIPASE PROTEASE
     Indication: Alcoholic pancreatitis
     Route: 048
     Dates: start: 202305
  2. ZENPEP [Suspect]
     Active Substance: PANCRELIPASE AMYLASE\PANCRELIPASE LIPASE\PANCRELIPASE PROTEASE
     Route: 048
  3. ZENPEP [Suspect]
     Active Substance: PANCRELIPASE AMYLASE\PANCRELIPASE LIPASE\PANCRELIPASE PROTEASE
     Route: 048

REACTIONS (10)
  - Pneumonia [Unknown]
  - Dyspnoea [Unknown]
  - Therapeutic product effect variable [Unknown]
  - Weight increased [Unknown]
  - Abnormal faeces [Unknown]
  - Abdominal pain upper [Not Recovered/Not Resolved]
  - Flatulence [Unknown]
  - Weight decreased [Unknown]
  - Diarrhoea [Unknown]
  - Steatorrhoea [Unknown]
